FAERS Safety Report 15929643 (Version 25)
Quarter: 2021Q4

REPORT INFORMATION
  Report Type: Spontaneous
  Country: US (occurrence: US)
  Receive Date: 20190206
  Receipt Date: 20211001
  Transmission Date: 20220303
  Serious: Yes (Other)
  Sender: FDA-Public Use
  Company Number: US-PFIZER INC-2017548881

PATIENT
  Age: 66 Year
  Sex: Female
  Weight: 59 kg

DRUGS (11)
  1. LYRICA [Suspect]
     Active Substance: PREGABALIN
     Indication: Neuropathy peripheral
     Dosage: 1 DF, 2X/DAY
     Route: 048
  2. LYRICA [Suspect]
     Active Substance: PREGABALIN
     Indication: Fibromyalgia
     Dosage: 300 MG, 3X/DAY
     Route: 048
  3. LYRICA [Suspect]
     Active Substance: PREGABALIN
     Indication: Pain
     Dosage: 900 MG, DAILY (300MG MORNING, 300MG THE AFTERNOON AND 300MG NIGHT)
     Route: 048
  4. LYRICA [Suspect]
     Active Substance: PREGABALIN
     Dosage: 600 MG, DAILY
  5. LYRICA [Suspect]
     Active Substance: PREGABALIN
     Dosage: 450 MG, DAILY
  6. LYRICA [Suspect]
     Active Substance: PREGABALIN
     Dosage: 150 MG, 3X/DAY (150MG CAPSULE THREE TIMES A DAY)
  7. ALPRAZOLAM [Concomitant]
     Active Substance: ALPRAZOLAM
     Indication: Anxiety
     Dosage: 2 MG, 2X/DAY (2MG TWICE A DAY)
  8. DICYCLOMINE [Concomitant]
     Active Substance: DICYCLOMINE HYDROCHLORIDE
     Indication: Gastrointestinal pain
     Dosage: UNK (SHE DOES NOT TAKE IT EVERY DAY)
  9. LISINOPRIL [Concomitant]
     Active Substance: LISINOPRIL
     Indication: Blood pressure abnormal
     Dosage: 10 MG, DAILY
  10. LISINOPRIL [Concomitant]
     Active Substance: LISINOPRIL
     Indication: Hypertension
  11. PANTOPRAZOLE [Concomitant]
     Active Substance: PANTOPRAZOLE
     Indication: Abdominal discomfort
     Dosage: UNK (40MG ONCE DAY AND IF HAVE PROBLEMS CAN HAVE EXTRA ONE AT NIGHT; NO MORE THAN 2 A DAY)

REACTIONS (29)
  - Haemorrhage [Unknown]
  - Pneumonia [Recovered/Resolved]
  - Malignant melanoma [Unknown]
  - Pelvic fracture [Unknown]
  - Hip fracture [Unknown]
  - Coronary artery occlusion [Unknown]
  - Neoplasm malignant [Unknown]
  - Haemoptysis [Unknown]
  - Drug ineffective [Unknown]
  - Intentional product misuse [Unknown]
  - Prescribed overdose [Unknown]
  - Product dispensing error [Unknown]
  - Product dose omission issue [Unknown]
  - Therapeutic response shortened [Unknown]
  - Amnesia [Unknown]
  - Alopecia [Not Recovered/Not Resolved]
  - Abdominal pain upper [Unknown]
  - Cough [Unknown]
  - Dyspnoea [Unknown]
  - Dizziness [Unknown]
  - Fall [Unknown]
  - Hypoaesthesia [Unknown]
  - Insomnia [Unknown]
  - Pain in extremity [Not Recovered/Not Resolved]
  - Thinking abnormal [Unknown]
  - Weight decreased [Unknown]
  - Cerebral disorder [Unknown]
  - Cardiovascular disorder [Unknown]
  - Memory impairment [Unknown]

NARRATIVE: CASE EVENT DATE: 20190101
